FAERS Safety Report 5311493-X (Version None)
Quarter: 2007Q2

REPORT INFORMATION
  Report Type: 
  Country: None (occurrence: None)
  Receive Date: 20070430
  Receipt Date: 20070425
  Transmission Date: 20071010
  Serious: Yes (Hospitalization)
  Sender: FDA-Public Use
  Company Number: 2007-02014

PATIENT
  Sex: Female

DRUGS (10)
  1. WELLBUTRIN SR [Suspect]
     Indication: DEPRESSION
     Dosage: 100MG TWICE PER DAY
     Route: 048
  2. WELLBUTRIN XL [Suspect]
     Indication: DEPRESSION
     Dosage: 150MG PER DAY
     Route: 048
  3. BUPROPION HCL [Suspect]
     Indication: DEPRESSION
     Dosage: 150MG TWICE PER DAY
     Route: 048
     Dates: start: 20070101
  4. DIOVAN HCT [Concomitant]
     Indication: HYPERTENSION
     Dosage: 1TAB PER DAY
  5. ESTRADIOL [Concomitant]
  6. LORAZEPAM [Concomitant]
  7. TOPROL-XL [Concomitant]
     Indication: HYPERTENSION
     Dosage: 1TAB PER DAY
  8. FLOVENT [Concomitant]
  9. PROVENTIL-HFA [Concomitant]
  10. ATIVAN [Concomitant]
     Indication: ANXIETY
     Dosage: .5MG AS REQUIRED

REACTIONS (8)
  - BALANCE DISORDER [None]
  - CEREBROVASCULAR ACCIDENT [None]
  - DEAFNESS [None]
  - DRUG INEFFECTIVE [None]
  - HEADACHE [None]
  - MIGRAINE [None]
  - PHARMACEUTICAL PRODUCT COMPLAINT [None]
  - TACHYCARDIA [None]
